FAERS Safety Report 5818827-8 (Version None)
Quarter: 2008Q3

REPORT INFORMATION
  Report Type: 
  Country: None (occurrence: None)
  Receive Date: 20080718
  Receipt Date: 20080708
  Transmission Date: 20090109
  Serious: Yes (Hospitalization)
  Sender: FDA-Public Use
  Company Number: 163-21880-08070434

PATIENT
  Age: 62 Year
  Sex: Male

DRUGS (20)
  1. REVLIMID [Suspect]
     Indication: MULTIPLE MYELOMA
     Dosage: 10 MG, QD, D1-21, ORAL
     Route: 048
     Dates: start: 20080623
  2. RAD 001 (SIROLIMUS) [Suspect]
     Indication: MULTIPLE MYELOMA
     Dosage: 5 MG, QD D1-21, ORAL
     Route: 048
     Dates: start: 20080623
  3. ACYCLOVIR [Concomitant]
  4. AMBINE (ZOLPIDEM TARTRATE) [Concomitant]
  5. ANDROGEL [Concomitant]
  6. AREDIA [Concomitant]
  7. ASPIRIN [Concomitant]
  8. BACTRIM [Concomitant]
  9. CALCIUM WITH VITAMIN D (CALCIUM WITH VITAMIN D) [Concomitant]
  10. DIFLUCAN [Concomitant]
  11. COLACE (DOCUSATE SODIUM) [Concomitant]
  12. EFFEXOR [Concomitant]
  13. FOLIC ACID [Concomitant]
  14. LIPITOR [Concomitant]
  15. MULTIVITAMIN [Concomitant]
  16. NORVASC [Concomitant]
  17. OXYCODONE HCL [Concomitant]
  18. PROTONIX (PANTOPRAZOLE)` [Concomitant]
  19. REGLAN [Concomitant]
  20. VITAMIN B6 [Concomitant]

REACTIONS (11)
  - ATRIAL FIBRILLATION [None]
  - BACK PAIN [None]
  - BLOOD CREATININE INCREASED [None]
  - DISEASE PROGRESSION [None]
  - FATIGUE [None]
  - HYPERCALCAEMIA [None]
  - HYPERGLYCAEMIA [None]
  - MULTIPLE MYELOMA [None]
  - PAIN [None]
  - PALPITATIONS [None]
  - SPINAL FRACTURE [None]
